FAERS Safety Report 8928948 (Version 4)
Quarter: 2013Q1

REPORT INFORMATION
  Report Type: Spontaneous
  Country: MT (occurrence: MT)
  Receive Date: 20121128
  Receipt Date: 20130124
  Transmission Date: 20140127
  Serious: Yes (Hospitalization, Other)
  Sender: FDA-Public Use
  Company Number: MT-AMGEN-MLTSP2012070000

PATIENT
  Age: 44 Year
  Sex: Female
  Weight: 60 kg

DRUGS (5)
  1. ENBREL [Suspect]
     Indication: PSORIATIC ARTHROPATHY
     Dosage: 50 MG, WEEKLY
     Route: 058
     Dates: start: 20090123, end: 201203
  2. METHOTREXATE [Concomitant]
     Dosage: 10 MG, UNK
     Dates: start: 1996
  3. CYCLOSPORINE [Concomitant]
     Dosage: 200 MG, DAILY
  4. OMEPRAZOLE [Concomitant]
     Dosage: UNK
  5. SANATOGEN MULTIVITAMINS [Concomitant]
     Dosage: UNK
     Dates: start: 2012

REACTIONS (2)
  - Post procedural complication [Unknown]
  - Embolism [Unknown]
